FAERS Safety Report 7225422-5 (Version None)
Quarter: 2011Q1

REPORT INFORMATION
  Report Type: 
  Country: None (occurrence: None)
  Receive Date: 20110113
  Receipt Date: 20101007
  Transmission Date: 20110831
  Serious: No
  Sender: FDA-Public Use
  Company Number: US-NOVEN-10US001391

PATIENT
  Sex: Female

DRUGS (2)
  1. FENTANYL-100 [Suspect]
     Dosage: 75MCG/HR Q 72 HOURS
     Route: 062
  2. UNKNOWN [Concomitant]

REACTIONS (3)
  - APPLICATION SITE RASH [None]
  - APPLICATION SITE ERYTHEMA [None]
  - APPLICATION SITE ULCER [None]
